FAERS Safety Report 6266600-1 (Version None)
Quarter: 2009Q3

REPORT INFORMATION
  Report Type: 
  Country: None (occurrence: None)
  Receive Date: 20090713
  Receipt Date: 20090703
  Transmission Date: 20100115
  Serious: No
  Sender: FDA-Public Use
  Company Number: JP-ABBOTT-09P-087-0567210-00

PATIENT
  Sex: Male
  Weight: 18 kg

DRUGS (5)
  1. CLARITH DS [Suspect]
     Indication: BRONCHITIS
     Route: 048
     Dates: start: 20090328, end: 20090330
  2. MIYA BM [Concomitant]
     Indication: DRUG USE FOR UNKNOWN INDICATION
     Route: 048
     Dates: start: 20090328, end: 20090331
  3. ASVERIN [Concomitant]
     Indication: RHINITIS
     Route: 048
     Dates: start: 20090328
  4. MUCODYNE [Concomitant]
     Indication: BRONCHITIS
     Route: 048
     Dates: start: 20090328
  5. TELGIN-G [Concomitant]
     Indication: RHINITIS
     Route: 048
     Dates: start: 20090328

REACTIONS (1)
  - RHABDOMYOLYSIS [None]
